FAERS Safety Report 12262276 (Version 2)
Quarter: 2016Q2

REPORT INFORMATION
  Report Type: Spontaneous
  Country: US (occurrence: US)
  Receive Date: 20160413
  Receipt Date: 20160415
  Transmission Date: 20160815
  Serious: No
  Sender: FDA-Public Use
  Company Number: US-BAYER-2016-070313

PATIENT
  Age: 24 Year
  Sex: Male

DRUGS (2)
  1. CLARITIN REDITABS [Suspect]
     Active Substance: LORATADINE
     Indication: HYPERSENSITIVITY
     Dosage: IN THE PAST CONSUMER TOOK 1 TABLET EVERY 12 HOURS
  2. CLARITIN REDITABS [Suspect]
     Active Substance: LORATADINE
     Indication: ARTHROPOD BITE
     Dosage: TOOK 3 AT ONE TIME
     Route: 048
     Dates: start: 20160412, end: 20160412

REACTIONS (2)
  - Product use issue [Recovered/Resolved]
  - Lip swelling [None]

NARRATIVE: CASE EVENT DATE: 20160412
